FAERS Safety Report 4290459-5 (Version None)
Quarter: 2004Q1

REPORT INFORMATION
  Report Type: 
  Country: None (occurrence: None)
  Receive Date: 20040209
  Receipt Date: 20040126
  Transmission Date: 20041129
  Serious: Yes (Other)
  Sender: FDA-Public Use
  Company Number: 203853

PATIENT
  Age: 59 Year
  Sex: Male

DRUGS (12)
  1. MABTHERA (RITUXIMAB) CONC FOR SOLUTION FOR INFUSION [Suspect]
     Indication: LYMPHOMA
     Dosage: 375 MG
     Dates: start: 20031021, end: 20031021
  2. MABTHERA (RITUXIMAB) CONC FOR SOLUTION FOR INFUSION [Suspect]
     Indication: LYMPHOMA
     Dosage: 375 MG
     Dates: start: 20031028, end: 20031028
  3. MABTHERA (RITUXIMAB) CONC FOR SOLUTION FOR INFUSION [Suspect]
     Indication: LYMPHOMA
     Dosage: 375 MG
     Dates: start: 20031106, end: 20031106
  4. COTRIM (SULFAMETHOXAZOLE, TRIMETHOPRIM) [Concomitant]
  5. ALLOPURINOL [Concomitant]
  6. BELOC (METOPROLOL TARTRATE) [Concomitant]
  7. DHAP (CISPLATIN, CYTARABINE, DEXAMETHASONE) [Concomitant]
  8. PRAVASTATIN SODIUM [Concomitant]
  9. UNAT (TORSEMIDE) [Concomitant]
  10. ASS (ASPIRIN) [Concomitant]
  11. PANTOZOL (PANTOPRAZOLE) [Concomitant]
  12. PLAVIX [Concomitant]

REACTIONS (5)
  - AUTOIMMUNE DISORDER [None]
  - DERMATITIS EXFOLIATIVE [None]
  - ENTEROCOLITIS HAEMORRHAGIC [None]
  - HEPATITIS [None]
  - PULMONARY EMBOLISM [None]
